FAERS Safety Report 9579644 (Version 1)
Quarter: 2013Q4

REPORT INFORMATION
  Report Type: Spontaneous
  Country: RU (occurrence: RU)
  Receive Date: 20131002
  Receipt Date: 20131002
  Transmission Date: 20140711
  Serious: Yes (Other)
  Sender: FDA-Public Use
  Company Number: RU-009507513-1309RUS014027

PATIENT
  Age: 32 Year
  Sex: Female

DRUGS (2)
  1. NUVARING [Suspect]
     Route: 067
  2. LINDYNETTE [Suspect]

REACTIONS (3)
  - Vulvovaginal dryness [Unknown]
  - Mammoplasty [Unknown]
  - Abdominal pain lower [Unknown]
